FAERS Safety Report 11503579 (Version 1)
Quarter: 2015Q3

REPORT INFORMATION
  Report Type: Spontaneous
  Country: US (occurrence: US)
  Receive Date: 20150914
  Receipt Date: 20150914
  Transmission Date: 20151125
  Serious: No
  Sender: FDA-Public Use
  Company Number: US-ASTELLAS-2015US026358

PATIENT
  Sex: Male

DRUGS (1)
  1. XTANDI [Suspect]
     Active Substance: ENZALUTAMIDE
     Indication: PROSTATE CANCER METASTATIC
     Route: 065
     Dates: start: 201504, end: 201507

REACTIONS (10)
  - Prostatic specific antigen increased [Unknown]
  - Myalgia [Unknown]
  - Pain [Unknown]
  - Malaise [Unknown]
  - Fall [Unknown]
  - Muscular weakness [Unknown]
  - Gait disturbance [Unknown]
  - Constipation [Unknown]
  - Asthenia [Unknown]
  - Diarrhoea [Unknown]
